FAERS Safety Report 7073251-8 (Version None)
Quarter: 2010Q4

REPORT INFORMATION
  Report Type: 
  Country: None (occurrence: None)
  Receive Date: 20101029
  Receipt Date: 20100517
  Transmission Date: 20110411
  Serious: No
  Sender: FDA-Public Use
  Company Number: A0860010A

PATIENT
  Age: 62 Year
  Sex: Female

DRUGS (11)
  1. ADVAIR DISKUS 100/50 [Suspect]
     Indication: BRONCHITIS
     Dosage: 1PUFF TWICE PER DAY
     Route: 055
     Dates: start: 20100428, end: 20100430
  2. PROAIR HFA [Concomitant]
     Dates: start: 20100428
  3. BENZONATATE [Concomitant]
     Dates: start: 20100428
  4. METHYLPREDNISOLONE [Concomitant]
     Dates: start: 20100428
  5. LEVOTHYROXINE [Concomitant]
  6. LORAZEPAM [Concomitant]
  7. NORTRIPTYLINE [Concomitant]
  8. CENTRUM VITAMIN [Concomitant]
  9. BONIVA [Concomitant]
  10. AZITHROMYCIN [Concomitant]
     Dates: start: 20100428
  11. TUSSIN WITH CODEINE [Concomitant]

REACTIONS (1)
  - DYSGEUSIA [None]
